FAERS Safety Report 6428867-6 (Version None)
Quarter: 2009Q4

REPORT INFORMATION
  Report Type: 
  Country: None (occurrence: None)
  Receive Date: 20091104
  Receipt Date: 20091104
  Transmission Date: 20100525
  Serious: No
  Sender: FDA-Public Use
  Company Number: None

PATIENT
  Age: 49 Year
  Sex: Female
  Weight: 47.6277 kg

DRUGS (1)
  1. BUSPIRONE HCL [Suspect]
     Indication: ANXIETY
     Dosage: 5 MG 3 TIMES DAILY, PO
     Route: 048
     Dates: start: 20090810, end: 20090825

REACTIONS (1)
  - HALLUCINATION, VISUAL [None]
